FAERS Safety Report 5515851-X (Version None)
Quarter: 2007Q4

REPORT INFORMATION
  Report Type: 
  Country: None (occurrence: None)
  Receive Date: 20071114
  Receipt Date: 20071108
  Transmission Date: 20080405
  Serious: Yes (Hospitalization)
  Sender: FDA-Public Use
  Company Number: US-WYE-H01139507

PATIENT
  Age: 48 Year
  Sex: Female

DRUGS (2)
  1. PHENERGAN HCL [Suspect]
     Dosage: DOSE AND FREQUENCY UNSPECIFIED
     Dates: start: 20070717
  2. NUBAIN [Suspect]
     Dosage: DOSE AND FREQUENCY UNSPECIFIED
     Dates: start: 20070717

REACTIONS (2)
  - HYPERSENSITIVITY [None]
  - SWELLING FACE [None]
